FAERS Safety Report 16774396 (Version 1)
Quarter: 2019Q3

REPORT INFORMATION
  Report Type: Other
  Country: IT (occurrence: IT)
  Receive Date: 20190905
  Receipt Date: 20190905
  Transmission Date: 20191005
  Serious: Yes (Life-Threatening, Hospitalization)
  Sender: FDA-Public Use
  Company Number: IT-GRANULES INDIA LIMITED-2074048

PATIENT
  Age: 57 Year
  Sex: Male

DRUGS (1)
  1. GABAPENTIN CAPSULES USP, 100MG, 300MG, 400MG [Suspect]
     Active Substance: GABAPENTIN
     Indication: ESSENTIAL TREMOR
     Route: 065

REACTIONS (4)
  - Status epilepticus [Recovered/Resolved]
  - Loss of personal independence in daily activities [Unknown]
  - Metabolic acidosis [Recovering/Resolving]
  - Respiratory failure [Recovering/Resolving]
